FAERS Safety Report 25241691 (Version 2)
Quarter: 2025Q2

REPORT INFORMATION
  Report Type: Spontaneous
  Country: FR (occurrence: FR)
  Receive Date: 20250426
  Receipt Date: 20250506
  Transmission Date: 20250717
  Serious: Yes (Other)
  Sender: ABBVIE
  Company Number: None

PATIENT
  Age: 74 Year
  Sex: Female
  Weight: 75 kg

DRUGS (9)
  1. DALBAVANCIN [Suspect]
     Active Substance: DALBAVANCIN
     Indication: Bacterial infection
     Route: 042
     Dates: start: 20250404, end: 20250404
  2. DALBAVANCIN [Suspect]
     Active Substance: DALBAVANCIN
     Indication: Bacterial infection
     Route: 042
     Dates: start: 20250221, end: 20250221
  3. DALBAVANCIN [Suspect]
     Active Substance: DALBAVANCIN
     Indication: Bacterial infection
     Route: 042
     Dates: start: 20250305, end: 20250305
  4. KARDEGIC [Concomitant]
     Active Substance: ASPIRIN DL-LYSINE
     Indication: Product used for unknown indication
     Dosage: ONE SACHET IN THE MORNING
     Route: 048
  5. ATORVASTATIN [Concomitant]
     Active Substance: ATORVASTATIN
     Indication: Product used for unknown indication
     Dosage: ONE CP IN THE EVENING
     Route: 048
  6. CIPROFLOXACIN [Concomitant]
     Active Substance: CIPROFLOXACIN
     Indication: Product used for unknown indication
     Dosage: 1 CP MORNING AND EVENING
     Route: 048
     Dates: start: 20250301
  7. POLYETHYLENE GLYCOL 4000 [Concomitant]
     Active Substance: POLYETHYLENE GLYCOL 4000
     Indication: Product used for unknown indication
     Dosage: TWO SACHETS EVERY MORNING
     Route: 048
  8. RIFAMPIN [Concomitant]
     Active Substance: RIFAMPIN
     Indication: Product used for unknown indication
     Dosage: THREE CAPSULES IN THE EVENING
     Route: 048
     Dates: start: 20250217
  9. ZOPICLONE [Concomitant]
     Active Substance: ZOPICLONE
     Indication: Product used for unknown indication
     Dosage: ONE CP IN THE EVENING
     Route: 048

REACTIONS (1)
  - Anaphylactoid reaction [Recovered/Resolved]

NARRATIVE: CASE EVENT DATE: 20250404
